FAERS Safety Report 12216670 (Version 1)
Quarter: 2016Q1

REPORT INFORMATION
  Report Type: Spontaneous
  Country: JP (occurrence: None)
  Receive Date: 20160328
  Receipt Date: 20160328
  Transmission Date: 20160526
  Serious: Yes (Disabling)
  Sender: FDA-Public Use
  Company Number: None

PATIENT
  Age: 35 Year
  Sex: Female
  Weight: 48 kg

DRUGS (2)
  1. RISPERIDONE, 1 MG KOBAYASHI PHARMACEUTICAL COMPANY [Suspect]
     Active Substance: RISPERIDONE
     Indication: SCHIZOPHRENIA
     Dosage: 70 LIQUID PACKAGE ONCE A DAY TAKEN BY MOUTH
     Route: 048
     Dates: start: 20160325, end: 20160327
  2. RISPERIDONE. [Concomitant]
     Active Substance: RISPERIDONE

REACTIONS (1)
  - Choking sensation [None]

NARRATIVE: CASE EVENT DATE: 20160325
